FAERS Safety Report 6528770-7 (Version None)
Quarter: 2009Q4

REPORT INFORMATION
  Report Type: 
  Country: None (occurrence: None)
  Receive Date: 20091223
  Receipt Date: 20091207
  Transmission Date: 20100525
  Serious: Yes (Disabling)
  Sender: FDA-Public Use
  Company Number: 003075

PATIENT
  Age: 36 Year
  Sex: Male

DRUGS (5)
  1. PREDNISOLONE [Suspect]
     Indication: PSORIATIC ARTHROPATHY
     Dosage: ORAL
     Route: 048
     Dates: start: 20091121
  2. OMEPRAZOLE [Suspect]
     Indication: PSORIATIC ARTHROPATHY
     Dosage: ORAL
     Route: 048
     Dates: start: 20090525
  3. INFLUENZA VACCINE (PANDEMRIX) [Suspect]
     Indication: PROPHYLAXIS
     Dosage: INTRAVENOUS
     Route: 042
     Dates: start: 20091202, end: 20091202
  4. INDOMETHACIN [Suspect]
     Indication: PSORIATIC ARTHROPATHY
     Dosage: ORAL
     Route: 048
     Dates: start: 20090525
  5. INFLUENZA [Concomitant]

REACTIONS (1)
  - TENDONITIS [None]
